FAERS Safety Report 7957811-5 (Version None)
Quarter: 2011Q4

REPORT INFORMATION
  Report Type: 
  Country: None (occurrence: None)
  Receive Date: 20111205
  Receipt Date: 20111129
  Transmission Date: 20120403
  Serious: Yes (Other)
  Sender: FDA-Public Use
  Company Number: VE-ABBOTT-11P-178-0879530-00

PATIENT
  Sex: Male
  Weight: 84 kg

DRUGS (1)
  1. HUMIRA [Suspect]
     Indication: PSORIASIS
     Dosage: 40MG/0.8ML EVERY OTHER WEEK
     Route: 058
     Dates: start: 20090401, end: 20110930

REACTIONS (7)
  - TUBERCULIN TEST POSITIVE [None]
  - NASOPHARYNGITIS [None]
  - SECONDARY IMMUNODEFICIENCY [None]
  - WEIGHT DECREASED [None]
  - INCREASED UPPER AIRWAY SECRETION [None]
  - DIABETES MELLITUS [None]
  - VIRAL INFECTION [None]
